FAERS Safety Report 25413971 (Version 1)
Quarter: 2025Q2

REPORT INFORMATION
  Report Type: Spontaneous
  Country: US (occurrence: None)
  Receive Date: 20250608
  Receipt Date: 20250608
  Transmission Date: 20250716
  Serious: Yes (Other)
  Sender: FDA-CTU
  Company Number: None

PATIENT
  Age: 47 Year
  Sex: Female
  Weight: 69.3 kg

DRUGS (4)
  1. ICY HOT MEDICATED NO MESS APPLICATOR [Suspect]
     Active Substance: MENTHOL
     Indication: Myalgia
     Dosage: OTHER QUANTITY : 1 ROLLER;?FREQUENCY : EVERY 6 HOURS;?
     Route: 061
     Dates: start: 20250603, end: 20250603
  2. ESTRADIOL [Concomitant]
     Active Substance: ESTRADIOL
  3. PROGESTERONE [Concomitant]
     Active Substance: PROGESTERONE
  4. CLARITIN-D NOS [Concomitant]
     Active Substance: LORATADINE\PSEUDOEPHEDRINE SULFATE

REACTIONS (1)
  - Burns second degree [None]

NARRATIVE: CASE EVENT DATE: 20250603
